FAERS Safety Report 8512770 (Version 2)
Quarter: 2014Q2

REPORT INFORMATION
  Report Type: Spontaneous
  Country: US (occurrence: US)
  Receive Date: 20120413
  Receipt Date: 20140401
  Transmission Date: 20141212
  Serious: No
  Sender: FDA-Public Use
  Company Number: US-ASTRAZENECA-2011SE51728

PATIENT
  Age: 62 Year
  Sex: Male

DRUGS (2)
  1. NEXIUM [Suspect]
     Indication: GASTROOESOPHAGEAL REFLUX DISEASE
     Route: 048
  2. PRILOSEC [Suspect]
     Dosage: TWICE A DAY
     Route: 048

REACTIONS (5)
  - Barrett^s oesophagus [Unknown]
  - Sleep apnoea syndrome [Unknown]
  - Gastric disorder [Unknown]
  - Drug dose omission [Unknown]
  - Drug ineffective [Unknown]
